FAERS Safety Report 9455471 (Version 3)
Quarter: 2013Q4

REPORT INFORMATION
  Report Type: Report from Study
  Country: FR (occurrence: FR)
  Receive Date: 20130813
  Receipt Date: 20131108
  Transmission Date: 20140711
  Serious: Yes (Other)
  Sender: FDA-Public Use
  Company Number: FR-US-EMD SERONO, INC.-7228810

PATIENT
  Age: 26 Year
  Sex: Female
  Weight: 56 kg

DRUGS (13)
  1. BLINDED STUDY MEDICATION [Suspect]
     Indication: VITAMIN D DEFICIENCY
     Route: 048
     Dates: start: 20110623
  2. REBIF [Suspect]
     Indication: RELAPSING-REMITTING MULTIPLE SCLEROSIS
     Route: 058
     Dates: start: 20110219, end: 20130425
  3. REBIF [Suspect]
     Route: 058
     Dates: start: 201308, end: 20131023
  4. VESICARE                           /01735902/ [Concomitant]
     Indication: PRODUCT USED FOR UNKNOWN INDICATION
     Route: 048
     Dates: start: 20110504
  5. VENLAFAXINE LP [Concomitant]
     Indication: DEPRESSION
     Route: 048
     Dates: start: 20110124, end: 201302
  6. VENLAFAXINE LP [Concomitant]
     Route: 048
     Dates: start: 201302
  7. PARACETAMOL [Concomitant]
     Indication: HEADACHE
     Dates: start: 201102
  8. PARACETAMOL [Concomitant]
     Indication: INFLUENZA LIKE ILLNESS
     Dates: start: 201209
  9. CYCLEANE [Concomitant]
     Indication: CONTRACEPTION
     Dates: start: 201105, end: 201212
  10. LEELOO [Concomitant]
     Indication: CONTRACEPTION
     Dates: start: 201212
  11. TOLEXINE                           /00055701/ [Concomitant]
     Indication: ACNE
     Dates: start: 201209
  12. XANAX [Concomitant]
     Indication: PRODUCT USED FOR UNKNOWN INDICATION
     Dates: start: 201206
  13. STILNOX                            /00914901/ [Concomitant]
     Indication: PRODUCT USED FOR UNKNOWN INDICATION
     Dates: start: 201210

REACTIONS (1)
  - Pancytopenia [Recovered/Resolved]
